FAERS Safety Report 9827197 (Version 1)
Quarter: 2014Q1

REPORT INFORMATION
  Report Type: Report from Study
  Country: JP (occurrence: JP)
  Receive Date: 20140117
  Receipt Date: 20140117
  Transmission Date: 20141002
  Serious: Yes (Other)
  Sender: FDA-Public Use
  Company Number: JP-JNJFOC-20140109324

PATIENT
  Age: 42 Year
  Sex: Male
  Weight: 91 kg

DRUGS (6)
  1. STELARA [Suspect]
     Indication: PSORIASIS
     Route: 058
     Dates: start: 20120704, end: 20120704
  2. STELARA [Suspect]
     Indication: PSORIASIS
     Route: 058
     Dates: start: 20120509, end: 20120509
  3. DERMOVATE [Concomitant]
     Indication: PSORIASIS
     Route: 061
     Dates: start: 20120606
  4. OXAROL [Concomitant]
     Indication: PSORIASIS
     Route: 061
     Dates: start: 20120606
  5. DOVONEX [Concomitant]
     Indication: PSORIASIS
     Route: 061
     Dates: start: 20120606
  6. DERMOVATE [Concomitant]
     Indication: PSORIASIS
     Route: 061
     Dates: start: 20120606

REACTIONS (2)
  - Pustular psoriasis [Recovered/Resolved]
  - Alopecia areata [Recovered/Resolved]
